FAERS Safety Report 8874551 (Version 1)
Quarter: 2012Q4

REPORT INFORMATION
  Report Type: 
  Country: AU (occurrence: AU)
  Receive Date: 20121023
  Receipt Date: 20121023
  Transmission Date: 20130627
  Serious: Yes (Life-Threatening)
  Sender: FDA-Public Use
  Company Number: AU-ABBOTT-12P-008-0997099-00

PATIENT
  Sex: Male

DRUGS (1)
  1. LEUPROLIDE ACETATE DEPOT [Suspect]
     Indication: PROSTATE CANCER
     Dates: start: 201204, end: 20121016

REACTIONS (2)
  - Central nervous system lesion [Unknown]
  - Headache [Unknown]
